FAERS Safety Report 19726634 (Version 1)
Quarter: 2021Q3

REPORT INFORMATION
  Report Type: Other
  Country: US (occurrence: US)
  Receive Date: 20210819
  Receipt Date: 20210819
  Transmission Date: 20211014
  Serious: Yes (Other)
  Sender: FDA-Public Use
  Company Number: US-APOTEX-2021AP037708

PATIENT
  Age: 52 Year
  Sex: Male

DRUGS (9)
  1. RANITIDINE SUSPENSION [Suspect]
     Active Substance: RANITIDINE HYDROCHLORIDE
     Indication: DYSPEPSIA
  2. RANITIDINE TABLETS [Suspect]
     Active Substance: RANITIDINE HYDROCHLORIDE
     Indication: DYSPEPSIA
  3. RANITIDINE TABLETS [Suspect]
     Active Substance: RANITIDINE HYDROCHLORIDE
     Indication: ABDOMINAL DISCOMFORT
  4. RANITIDINE TABLETS [Suspect]
     Active Substance: RANITIDINE HYDROCHLORIDE
     Dosage: OCCASIONAL
     Route: 065
     Dates: start: 198601, end: 201911
  5. ZANTAC [Suspect]
     Active Substance: RANITIDINE HYDROCHLORIDE
     Indication: ABDOMINAL DISCOMFORT
  6. ZANTAC [Suspect]
     Active Substance: RANITIDINE HYDROCHLORIDE
     Dosage: OCCASIONAL
     Route: 065
     Dates: start: 198601, end: 201911
  7. RANITIDINE SUSPENSION [Suspect]
     Active Substance: RANITIDINE HYDROCHLORIDE
     Indication: ABDOMINAL DISCOMFORT
  8. RANITIDINE SUSPENSION [Suspect]
     Active Substance: RANITIDINE HYDROCHLORIDE
     Dosage: OCCASIONAL
     Route: 065
     Dates: start: 198601, end: 201911
  9. ZANTAC [Suspect]
     Active Substance: RANITIDINE HYDROCHLORIDE
     Indication: DYSPEPSIA

REACTIONS (3)
  - Hepatic cancer [Not Recovered/Not Resolved]
  - Oesophageal carcinoma [Not Recovered/Not Resolved]
  - Prostate cancer [Unknown]

NARRATIVE: CASE EVENT DATE: 20120101
